FAERS Safety Report 8900394 (Version 2)
Quarter: 2012Q4

REPORT INFORMATION
  Report Type: 
  Country: US (occurrence: US)
  Receive Date: 20121109
  Receipt Date: 20121228
  Transmission Date: 20130627
  Serious: No
  Sender: FDA-Public Use
  Company Number: US-B.I. PHARMACEUTICALS,INC./RIDGEFIELD-2012-BP-27139BP

PATIENT
  Sex: Male

DRUGS (3)
  1. COMBIVENT [Suspect]
     Dosage: 12 puf
  2. COMBIVENT [Suspect]
     Dosage: 3 puf
  3. ALBUTEROL [Concomitant]

REACTIONS (6)
  - Sleep disorder [Not Recovered/Not Resolved]
  - Therapeutic response decreased [Unknown]
  - Dyspnoea [Unknown]
  - Heart rate increased [Unknown]
  - Feeling abnormal [Unknown]
  - Product quality issue [Unknown]
